FAERS Safety Report 7898922-2 (Version None)
Quarter: 2011Q4

REPORT INFORMATION
  Report Type: 
  Country: None (occurrence: None)
  Receive Date: 20111107
  Receipt Date: 20111027
  Transmission Date: 20120403
  Serious: Yes (Hospitalization, Other)
  Sender: FDA-Public Use
  Company Number: US-ASTRAZENECA-2011SE46880

PATIENT
  Age: 63 Year
  Sex: Male

DRUGS (4)
  1. PROAIR HFA [Concomitant]
     Dosage: PRN
  2. SYMBICORT [Suspect]
     Dosage: ONE PUFF TWICE A DAY
     Route: 055
  3. SYMBICORT [Suspect]
     Dosage: 160, TWO PUFF TWICE A DAY
     Route: 055
  4. KLONOPIN [Concomitant]

REACTIONS (3)
  - PNEUMONIA [None]
  - LUNG NEOPLASM MALIGNANT [None]
  - MALAISE [None]
